FAERS Safety Report 4504871-X (Version None)
Quarter: 2004Q4

REPORT INFORMATION
  Report Type: 
  Country: None (occurrence: None)
  Receive Date: 20040928
  Receipt Date: 20040630
  Transmission Date: 20050328
  Serious: No
  Sender: FDA-Public Use
  Company Number: 04P-163-0265221-00

PATIENT
  Age: 48 Year
  Sex: Female
  Weight: 56.6996 kg

DRUGS (16)
  1. HUMIRA [Suspect]
     Indication: ANKYLOSING SPONDYLITIS
     Dosage: 40 MG, 1 IN 2 WK, SUBCUTANEOUS;  40 MG, 1 IN 1 WK, SUBCUTANEOUS
     Route: 058
     Dates: start: 20030601, end: 20040501
  2. HUMIRA [Suspect]
     Indication: FIBROMYALGIA
     Dosage: 40 MG, 1 IN 2 WK, SUBCUTANEOUS;  40 MG, 1 IN 1 WK, SUBCUTANEOUS
     Route: 058
     Dates: start: 20030601, end: 20040501
  3. HUMIRA [Suspect]
     Indication: RHEUMATOID ARTHRITIS
     Dosage: 40 MG, 1 IN 2 WK, SUBCUTANEOUS;  40 MG, 1 IN 1 WK, SUBCUTANEOUS
     Route: 058
     Dates: start: 20030601, end: 20040501
  4. HUMIRA [Suspect]
     Indication: ANKYLOSING SPONDYLITIS
     Dosage: 40 MG, 1 IN 2 WK, SUBCUTANEOUS;  40 MG, 1 IN 1 WK, SUBCUTANEOUS
     Route: 058
     Dates: start: 20040501
  5. HUMIRA [Suspect]
     Indication: FIBROMYALGIA
     Dosage: 40 MG, 1 IN 2 WK, SUBCUTANEOUS;  40 MG, 1 IN 1 WK, SUBCUTANEOUS
     Route: 058
     Dates: start: 20040501
  6. HUMIRA [Suspect]
     Indication: RHEUMATOID ARTHRITIS
     Dosage: 40 MG, 1 IN 2 WK, SUBCUTANEOUS;  40 MG, 1 IN 1 WK, SUBCUTANEOUS
     Route: 058
     Dates: start: 20040501
  7. FLUTICASONE PROPIONATE [Concomitant]
  8. SALBUTAMOL [Concomitant]
  9. LORATADINE [Concomitant]
  10. PANTOPRAZOLE [Concomitant]
  11. CYANOCOBALAMIN [Concomitant]
  12. CITALOPRAM HYDROBROMIDE [Concomitant]
  13. BUPROPION HYDROCHLORIDE [Concomitant]
  14. VALPROATE SODIUM [Concomitant]
  15. FENTANYL [Concomitant]
  16. ALPRAZOLAM [Concomitant]

REACTIONS (1)
  - INJECTION SITE BURNING [None]
